FAERS Safety Report 18691607 (Version 1)
Quarter: 2021Q1

REPORT INFORMATION
  Report Type: Report from Study
  Country: US (occurrence: US)
  Receive Date: 20210101
  Receipt Date: 20210101
  Transmission Date: 20210419
  Serious: Yes (Other)
  Sender: FDA-Public Use
  Company Number: US-MYLANLABS-2020M1104897

PATIENT
  Sex: Female
  Weight: 75 kg

DRUGS (2)
  1. WHISPERJECT? AUTOINJECTOR [Suspect]
     Active Substance: DEVICE
     Indication: MULTIPLE SCLEROSIS
     Dosage: UNK
  2. GLATIRAMER ACETATE INJECTION [Suspect]
     Active Substance: GLATIRAMER ACETATE
     Indication: MULTIPLE SCLEROSIS
     Dosage: 40 MILLIGRAM, 3XW
     Route: 058
     Dates: start: 20201216

REACTIONS (16)
  - Skin irritation [Not Recovered/Not Resolved]
  - Injection site bruising [Unknown]
  - Device issue [Recovered/Resolved]
  - Seizure [Unknown]
  - Tremor [Recovering/Resolving]
  - Chills [Unknown]
  - Nerve injury [Unknown]
  - Dyspnoea [Recovering/Resolving]
  - Hypoaesthesia [Recovering/Resolving]
  - Dyskinesia [Unknown]
  - Injection site pain [Unknown]
  - Hyperventilation [Recovering/Resolving]
  - Paralysis [Unknown]
  - Panic attack [Recovering/Resolving]
  - Peripheral coldness [Not Recovered/Not Resolved]
  - Injection site haemorrhage [Not Recovered/Not Resolved]
